FAERS Safety Report 8059122-9 (Version None)
Quarter: 2012Q1

REPORT INFORMATION
  Report Type: 
  Country: None (occurrence: None)
  Receive Date: 20120120
  Receipt Date: 20120116
  Transmission Date: 20120608
  Serious: Yes (Hospitalization, Other)
  Sender: FDA-Public Use
  Company Number: FR-PFIZER INC-2012011534

PATIENT
  Age: 58 Year
  Sex: Male

DRUGS (9)
  1. LYRICA [Suspect]
  2. NEXIUM [Concomitant]
  3. SODIUM BICARBONATE [Concomitant]
  4. ASPIRIN [Concomitant]
  5. ACETAMINOPHEN [Concomitant]
  6. PREDNISOLONE [Suspect]
     Indication: PAIN
     Dosage: 20 MG, 2X/DAY
     Dates: start: 20111031, end: 20111101
  7. MORPHINE SULFATE [Concomitant]
  8. DURAGESIC-100 [Concomitant]
  9. LEVOTHYROXINE SODIUM [Concomitant]

REACTIONS (2)
  - HYPOKALAEMIA [None]
  - ADRENAL INSUFFICIENCY [None]
